FAERS Safety Report 5131353-7 (Version None)
Quarter: 2006Q4

REPORT INFORMATION
  Report Type: 
  Country: None (occurrence: None)
  Receive Date: 20061016
  Receipt Date: 20061002
  Transmission Date: 20070319
  Serious: Yes (Death)
  Sender: FDA-Public Use
  Company Number: 2006000635

PATIENT
  Age: 40 Year

DRUGS (3)
  1. ROXANOL 100 [Suspect]
  2. COCAINE [Suspect]
  3. PHENCYCLIDINE [Suspect]

REACTIONS (1)
  - DEATH [None]
